FAERS Safety Report 23101315 (Version 2)
Quarter: 2023Q4

REPORT INFORMATION
  Report Type: Report from Study
  Country: US (occurrence: US)
  Receive Date: 20231024
  Receipt Date: 20231031
  Transmission Date: 20240110
  Serious: Yes (Hospitalization)
  Sender: FDA-Public Use
  Company Number: US-GENMAB-2023-00928

PATIENT
  Age: 30 Year
  Sex: Male
  Weight: 57.5 kg

DRUGS (130)
  1. EPCORITAMAB [Suspect]
     Active Substance: EPCORITAMAB
     Indication: Diffuse large B-cell lymphoma stage IV
     Dosage: C1D1
     Route: 058
     Dates: start: 20230320, end: 20230320
  2. EPCORITAMAB [Suspect]
     Active Substance: EPCORITAMAB
     Dosage: C1D8
     Route: 058
     Dates: start: 20230327, end: 20230327
  3. EPCORITAMAB [Suspect]
     Active Substance: EPCORITAMAB
     Dosage: C1D15 - C3D8
     Route: 058
     Dates: start: 20230403, end: 20230523
  4. EPCORITAMAB [Suspect]
     Active Substance: EPCORITAMAB
     Dosage: C3D15
     Route: 058
     Dates: start: 20230606, end: 20230606
  5. EPCORITAMAB [Suspect]
     Active Substance: EPCORITAMAB
     Dosage: C3D22
     Route: 058
     Dates: start: 20230705, end: 20230705
  6. EPCORITAMAB [Suspect]
     Active Substance: EPCORITAMAB
     Dosage: C4D1-ONWARDS
     Route: 058
     Dates: start: 20230711
  7. ACETAMINOPHEN [Concomitant]
     Active Substance: ACETAMINOPHEN
     Indication: Premedication
     Dosage: 650 MILLIGRAM, SINGLE
     Route: 048
     Dates: start: 20230327, end: 20230327
  8. ACETAMINOPHEN [Concomitant]
     Active Substance: ACETAMINOPHEN
     Dosage: 650 MILLIGRAM, SINGLE
     Route: 048
     Dates: start: 20230403, end: 20230403
  9. ACETAMINOPHEN [Concomitant]
     Active Substance: ACETAMINOPHEN
     Dosage: 650 MILLIGRAM, SINGLE
     Route: 048
     Dates: start: 20230410, end: 20230410
  10. ACETAMINOPHEN [Concomitant]
     Active Substance: ACETAMINOPHEN
     Dosage: 650 MILLIGRAM, SINGLE
     Route: 048
     Dates: start: 20230417, end: 20230417
  11. DIPHENHYDRAMINE [Concomitant]
     Active Substance: DIPHENHYDRAMINE
     Indication: Prophylaxis
     Dosage: 25 MILLIGRAM, SINGLE
     Route: 042
     Dates: start: 20230822, end: 20230822
  12. DIPHENHYDRAMINE [Concomitant]
     Active Substance: DIPHENHYDRAMINE
     Dosage: 25 MILLIGRAM, SINGLE
     Route: 042
     Dates: start: 20230919, end: 20230919
  13. SOLU-MEDROL [Concomitant]
     Active Substance: METHYLPREDNISOLONE SODIUM SUCCINATE
     Indication: Premedication
     Dosage: 80 MILLIGRAM, SINGLE
     Route: 042
     Dates: start: 20230327, end: 20230327
  14. SOLU-MEDROL [Concomitant]
     Active Substance: METHYLPREDNISOLONE SODIUM SUCCINATE
     Dosage: 80 MILLIGRAM, SINGLE
     Route: 042
     Dates: start: 20230403, end: 20230403
  15. SOLU-MEDROL [Concomitant]
     Active Substance: METHYLPREDNISOLONE SODIUM SUCCINATE
     Dosage: 80 MILLIGRAM, SINGLE
     Route: 042
     Dates: start: 20230410, end: 20230410
  16. SOLU-MEDROL [Concomitant]
     Active Substance: METHYLPREDNISOLONE SODIUM SUCCINATE
     Dosage: 80 MILLIGRAM, SINGLE
     Route: 042
     Dates: start: 20230417, end: 20230417
  17. DECADRON [Concomitant]
     Active Substance: DEXAMETHASONE
     Indication: Prophylaxis
     Dosage: 3 MILLIGRAM, QD
     Route: 048
     Dates: start: 20230321, end: 20230323
  18. DECADRON [Concomitant]
     Active Substance: DEXAMETHASONE
     Dosage: 3 MILLIGRAM, QD
     Route: 048
     Dates: start: 20230328, end: 20230329
  19. DECADRON [Concomitant]
     Active Substance: DEXAMETHASONE
     Dosage: 3 MILLIGRAM, QD
     Route: 048
     Dates: start: 20230404, end: 20230406
  20. DEXAMETHASONE [Concomitant]
     Active Substance: DEXAMETHASONE
     Indication: Prophylaxis
     Dosage: 15 MILLIGRAM, QD
     Route: 048
     Dates: start: 20230411, end: 20230413
  21. ACETAMINOPHEN [Concomitant]
     Active Substance: ACETAMINOPHEN
     Indication: Prophylaxis
     Dosage: 650 MILLIGRAM, SINGLE
     Route: 048
     Dates: start: 20230320, end: 20230320
  22. ACETAMINOPHEN [Concomitant]
     Active Substance: ACETAMINOPHEN
     Dosage: 650 MILLIGRAM, SINGLE
     Route: 048
     Dates: start: 20230327, end: 20230327
  23. ACETAMINOPHEN [Concomitant]
     Active Substance: ACETAMINOPHEN
     Dosage: 650 MILLIGRAM, SINGLE
     Route: 048
     Dates: start: 20230403, end: 20230403
  24. ACETAMINOPHEN [Concomitant]
     Active Substance: ACETAMINOPHEN
     Dosage: 650 MILLIGRAM, SINGLE
     Route: 048
     Dates: start: 20230410, end: 20230410
  25. ACETAMINOPHEN [Concomitant]
     Active Substance: ACETAMINOPHEN
     Dosage: 650 MILLIGRAM, SINGLE
     Route: 048
     Dates: start: 20230417, end: 20230417
  26. ACETAMINOPHEN [Concomitant]
     Active Substance: ACETAMINOPHEN
     Dosage: 650 MILLIGRAM, SINGLE
     Route: 048
     Dates: start: 20230526, end: 20230526
  27. ACETAMINOPHEN [Concomitant]
     Active Substance: ACETAMINOPHEN
     Dosage: 650 MILLIGRAM, SINGLE
     Route: 048
     Dates: start: 20230530, end: 20230530
  28. ACETAMINOPHEN [Concomitant]
     Active Substance: ACETAMINOPHEN
     Dosage: 650 MILLIGRAM, SINGLE
     Route: 048
     Dates: start: 20230606, end: 20230606
  29. ACETAMINOPHEN [Concomitant]
     Active Substance: ACETAMINOPHEN
     Dosage: 650 MILLIGRAM, SINGLE
     Route: 048
     Dates: start: 20230725, end: 20230725
  30. ACETAMINOPHEN [Concomitant]
     Active Substance: ACETAMINOPHEN
     Dosage: 650 MILLIGRAM, SINGLE
     Route: 048
     Dates: start: 20230727, end: 20230727
  31. ACETAMINOPHEN [Concomitant]
     Active Substance: ACETAMINOPHEN
     Dosage: 650 MILLIGRAM, SINGLE
     Route: 048
     Dates: start: 20230822, end: 20230822
  32. ACETAMINOPHEN [Concomitant]
     Active Substance: ACETAMINOPHEN
     Dosage: 650 MILLIGRAM, SINGLE
     Route: 048
     Dates: start: 20230919, end: 20230919
  33. ACYCLOVIR [Concomitant]
     Active Substance: ACYCLOVIR
     Indication: Prophylaxis
     Dosage: 400 MILLIGRAM, Q12H
     Route: 048
     Dates: start: 20230403, end: 20230404
  34. ACYCLOVIR [Concomitant]
     Active Substance: ACYCLOVIR
     Dosage: 400 MILLIGRAM, Q12H
     Route: 048
     Dates: start: 20230530, end: 20230602
  35. ACYCLOVIR [Concomitant]
     Active Substance: ACYCLOVIR
     Dosage: 400 MILLIGRAM, Q12H
     Route: 048
     Dates: start: 20230615, end: 20230621
  36. ACYCLOVIR [Concomitant]
     Active Substance: ACYCLOVIR
     Dosage: 400 MILLIGRAM, Q12H
     Route: 048
     Dates: start: 20230725, end: 20230727
  37. ALLOPURINOL [Concomitant]
     Active Substance: ALLOPURINOL
     Indication: Prophylaxis
     Dosage: 300 MILLIGRAM, QD
     Route: 048
     Dates: start: 20230403, end: 20230404
  38. ALLOPURINOL [Concomitant]
     Active Substance: ALLOPURINOL
     Dosage: 300 MILLIGRAM, QD
     Route: 048
     Dates: start: 20230530, end: 20230602
  39. BENADRYL [Concomitant]
     Active Substance: DIPHENHYDRAMINE HYDROCHLORIDE
     Indication: Premedication
     Dosage: 50 MILLIGRAM, SINGLE
     Route: 048
     Dates: start: 20230327, end: 20230327
  40. BENZONATATE [Concomitant]
     Active Substance: BENZONATATE
     Indication: Prophylaxis
     Dosage: 100 MILLIGRAM, TID
     Route: 048
     Dates: start: 20230530, end: 20230602
  41. CHLORASEPTIC SORE THROAT [Concomitant]
     Active Substance: PHENOL
     Indication: Cough
     Dosage: 1 DOSAGE FORM (SPRAY), Q2H (PRN)
     Route: 048
     Dates: start: 20230920, end: 20230927
  42. CITALOPRAM [Concomitant]
     Active Substance: CITALOPRAM HYDROBROMIDE
     Indication: Prophylaxis
     Dosage: 20 MILLIGRAM, TWICE
     Route: 048
     Dates: start: 20230403, end: 20230404
  43. CITALOPRAM [Concomitant]
     Active Substance: CITALOPRAM HYDROBROMIDE
     Dosage: 20 MILLIGRAM, QD
     Route: 048
     Dates: start: 20230530, end: 20230602
  44. CITALOPRAM [Concomitant]
     Active Substance: CITALOPRAM HYDROBROMIDE
     Dosage: 20 MILLIGRAM, QD
     Route: 048
     Dates: start: 20230615, end: 20230621
  45. CITALOPRAM [Concomitant]
     Active Substance: CITALOPRAM HYDROBROMIDE
     Dosage: 20 MILLIGRAM, TWICE
     Route: 048
     Dates: start: 20230726, end: 20230727
  46. CYCLOBENZAPRINE [Concomitant]
     Active Substance: CYCLOBENZAPRINE
     Indication: Prophylaxis
     Dosage: 5 MILLIGRAM, TID
     Route: 048
     Dates: start: 20230601, end: 20230601
  47. DEXTROMETHORPHAN\GUAIFENESIN [Concomitant]
     Active Substance: DEXTROMETHORPHAN\GUAIFENESIN
     Indication: Prophylaxis
     Dosage: 10 MILLILITER, Q4H
     Route: 048
     Dates: start: 20230618, end: 20230621
  48. DEXTROMETHORPHAN\GUAIFENESIN [Concomitant]
     Active Substance: DEXTROMETHORPHAN\GUAIFENESIN
     Indication: Cough
     Dosage: 5 MILLILITER, Q6H (PRN)
     Route: 048
     Dates: start: 20230923
  49. DIPHENHYDRAMINE [Concomitant]
     Active Substance: DIPHENHYDRAMINE
     Indication: Premedication
     Dosage: 50 MILLIGRAM, SINGLE
     Route: 048
     Dates: start: 20230320, end: 20230320
  50. DIPHENHYDRAMINE [Concomitant]
     Active Substance: DIPHENHYDRAMINE
     Dosage: 50 MILLIGRAM, SINGLE
     Route: 048
     Dates: start: 20230403, end: 20230403
  51. DIPHENHYDRAMINE [Concomitant]
     Active Substance: DIPHENHYDRAMINE
     Dosage: 50 MILLIGRAM, SINGLE
     Route: 048
     Dates: start: 20230410, end: 20230410
  52. DIPHENHYDRAMINE [Concomitant]
     Active Substance: DIPHENHYDRAMINE
     Dosage: 50 MILLIGRAM, SINGLE
     Route: 048
     Dates: start: 20230417, end: 20230417
  53. ENOXAPARIN [Concomitant]
     Active Substance: ENOXAPARIN
     Indication: Prophylaxis
     Dosage: 60 MILLIGRAM, Q12H
     Route: 058
     Dates: start: 20230718, end: 20230721
  54. ETOMIDATE [Concomitant]
     Active Substance: ETOMIDATE
     Indication: Sedation
     Dosage: 15 MILLIGRAM, SINGLE
     Dates: start: 20231020
  55. FAMOTIDINE [Concomitant]
     Active Substance: FAMOTIDINE
     Indication: Prophylaxis
     Dosage: 40 MILLIGRAM, BID
     Route: 048
     Dates: start: 20230530, end: 20230602
  56. HEPARIN [Concomitant]
     Active Substance: HEPARIN SODIUM
     Indication: Prophylaxis
     Dosage: 5000 UNITS, Q12H
     Route: 058
     Dates: start: 20230615, end: 20230618
  57. HUMAN IMMUNOGLOBULIN G [Concomitant]
     Active Substance: HUMAN IMMUNOGLOBULIN G
     Indication: Prophylaxis
     Dosage: 20 GRAM, SINGLE
     Route: 042
     Dates: start: 20230822, end: 20230822
  58. IMMUNE GLOBULIN NOS [Concomitant]
     Active Substance: IMMUNE GLOBULIN NOS
     Indication: Immunosuppression
     Dosage: 20 GRAM, SINGLE
     Route: 042
     Dates: start: 20231018, end: 20231018
  59. LACTATED RINGERS SOLUTION [Concomitant]
     Active Substance: CALCIUM CHLORIDE\POTASSIUM CHLORIDE\SODIUM CHLORIDE\SODIUM LACTATE
     Indication: Prophylaxis
     Dosage: 100 MILLILITER, CONTINUOUS
     Route: 042
     Dates: start: 20230619, end: 20230620
  60. LEVOFLOXACIN [Concomitant]
     Active Substance: LEVOFLOXACIN
     Indication: Prophylaxis
     Dosage: 750 MILLIGRAM, QD
     Route: 042
     Dates: start: 20230615, end: 20230615
  61. LEVOFLOXACIN [Concomitant]
     Active Substance: LEVOFLOXACIN
     Dosage: 750 MILLIGRAM, QD
     Route: 042
     Dates: start: 20231017, end: 20231018
  62. LIDOCAINE [Concomitant]
     Active Substance: LIDOCAINE
     Indication: Prophylaxis
     Dosage: 10 MILLIGRAM, PRN
     Route: 042
     Dates: start: 20230615, end: 20230615
  63. LORAZEPAM [Concomitant]
     Active Substance: LORAZEPAM
     Indication: Prophylaxis
     Dosage: 1 MILLIGRAM, SINGLE
     Route: 060
     Dates: start: 20230306, end: 20230306
  64. LORAZEPAM [Concomitant]
     Active Substance: LORAZEPAM
     Dosage: 0.5 MILLIGRAM, SINGLE
     Route: 042
     Dates: start: 20230530, end: 20230530
  65. LORAZEPAM [Concomitant]
     Active Substance: LORAZEPAM
     Dosage: 0.5 MILLIGRAM, TID
     Route: 048
     Dates: start: 20230531, end: 20230601
  66. LORAZEPAM [Concomitant]
     Active Substance: LORAZEPAM
     Dosage: 0.5 MILLIGRAM, TID
     Route: 048
     Dates: start: 20230615, end: 20230615
  67. LORAZEPAM [Concomitant]
     Active Substance: LORAZEPAM
     Dosage: 0.5 MILLIGRAM, TID
     Route: 048
     Dates: start: 20230617, end: 20230621
  68. LORAZEPAM [Concomitant]
     Active Substance: LORAZEPAM
     Dosage: 0.5 MILLIGRAM, QD
     Route: 048
     Dates: start: 20230725, end: 20230726
  69. MAGNESIUM SULFATE [Concomitant]
     Active Substance: MAGNESIUM SULFATE\MAGNESIUM SULFATE HEPTAHYDRATE
     Indication: Prophylaxis
     Dosage: 2 GRAM, SINGLE
     Route: 042
     Dates: start: 20230530, end: 20230530
  70. MAGNESIUM SULFATE [Concomitant]
     Active Substance: MAGNESIUM SULFATE\MAGNESIUM SULFATE HEPTAHYDRATE
     Dosage: 1 GRAM, EVERY HOUR (QH)
     Route: 042
     Dates: start: 20230617, end: 20230617
  71. MARINOL [Concomitant]
     Active Substance: DRONABINOL
     Indication: Decreased appetite
     Dosage: 2.5 MILLIGRAM, BID
     Route: 048
     Dates: start: 20230822
  72. MARINOL [Concomitant]
     Active Substance: DRONABINOL
     Indication: Weight decreased
     Dosage: 2.5 MILLIGRAM, QD (QN)
     Route: 048
     Dates: start: 20230822, end: 20230926
  73. MARINOL [Concomitant]
     Active Substance: DRONABINOL
     Indication: Decreased appetite
  74. MEROPENEM [Concomitant]
     Active Substance: MEROPENEM
     Indication: Infection prophylaxis
     Dosage: 1 GRAM, Q8H
     Route: 042
     Dates: start: 20231020
  75. MELATONIN [Concomitant]
     Active Substance: MELATONIN
     Indication: Prophylaxis
     Dosage: 3 MILLIGRAM, QD
     Route: 048
     Dates: start: 20230530, end: 20230601
  76. METOCLOPRAMIDE [Concomitant]
     Active Substance: METOCLOPRAMIDE
     Indication: Prophylaxis
     Dosage: 5 MILLIGRAM, TID
     Route: 048
     Dates: start: 20230530, end: 20230601
  77. OLANZAPINE [Concomitant]
     Active Substance: OLANZAPINE
     Indication: Decreased appetite
     Dosage: 2.5 MILLIGRAM, SINGLE
     Route: 048
     Dates: start: 20230601, end: 20230601
  78. OLANZAPINE [Concomitant]
     Active Substance: OLANZAPINE
     Indication: Weight decreased
     Dosage: 2.5 MILLIGRAM, BID
     Route: 048
     Dates: start: 20230617, end: 20230621
  79. ONDANSETRON [Concomitant]
     Active Substance: ONDANSETRON
     Indication: Prophylaxis
     Dosage: FREQUENCY : TWICE
     Route: 042
     Dates: start: 20230529, end: 20230530
  80. ONDANSETRON [Concomitant]
     Active Substance: ONDANSETRON
     Dosage: 4 MILLIGRAM, Q6H
     Route: 042
     Dates: start: 20230530, end: 20230601
  81. ONDANSETRON [Concomitant]
     Active Substance: ONDANSETRON
     Dosage: 8 MILLIGRAM, 3 TIMES BEFORE MEALS
     Route: 048
     Dates: start: 20230601, end: 20230602
  82. ONDANSETRON [Concomitant]
     Active Substance: ONDANSETRON
     Dosage: 8 MILLIGRAM, TID (ORALLY DISINTEGRATING)
     Route: 048
     Dates: start: 20230601, end: 20230602
  83. ONDANSETRON [Concomitant]
     Active Substance: ONDANSETRON
     Dosage: 4 MILLIGRAM, Q6H
     Route: 042
     Dates: start: 20230615, end: 20230621
  84. ONDANSETRON [Concomitant]
     Active Substance: ONDANSETRON
     Dosage: 4 MILLIGRAM, Q8H
     Route: 042
     Dates: start: 20230725, end: 20230727
  85. OXYCODONE [Concomitant]
     Active Substance: OXYCODONE
     Indication: Prophylaxis
     Dosage: 5 MILLIGRAM, TWICE
     Route: 048
     Dates: start: 20230306, end: 20230306
  86. OXYCODONE [Concomitant]
     Active Substance: OXYCODONE
     Indication: Bone pain
     Dosage: 5 MILLIGRAM, SINGLE
     Route: 048
     Dates: start: 20230403, end: 20230403
  87. OXYCODONE [Concomitant]
     Active Substance: OXYCODONE
     Dosage: 5 MILLIGRAM, Q8H
     Route: 048
     Dates: start: 20230530, end: 20230602
  88. OXYCODONE [Concomitant]
     Active Substance: OXYCODONE
     Dosage: 5 MILLIGRAM, Q8H
     Route: 048
     Dates: start: 20230726, end: 20230727
  89. OXYCODONE [Concomitant]
     Active Substance: OXYCODONE
     Dosage: 5 MILLIGRAM, Q8H
     Route: 048
     Dates: start: 20230901
  90. PANTOPRAZOLE [Concomitant]
     Active Substance: PANTOPRAZOLE
     Indication: Prophylaxis
     Dosage: 40 MILLIGRAM, SINGLE
     Route: 048
     Dates: start: 20230403, end: 20230404
  91. PANTOPRAZOLE [Concomitant]
     Active Substance: PANTOPRAZOLE
     Dosage: 40 MILLIGRAM, QD
     Route: 048
     Dates: start: 20230530, end: 20230602
  92. PANTOPRAZOLE [Concomitant]
     Active Substance: PANTOPRAZOLE
     Dosage: 40 MILLIGRAM, BID
     Route: 048
     Dates: start: 20230615, end: 20230621
  93. PANTOPRAZOLE [Concomitant]
     Active Substance: PANTOPRAZOLE
     Dosage: 40 MILLIGRAM, QD
     Route: 048
     Dates: start: 20230726, end: 20230726
  94. RIVAROXABAN [Concomitant]
     Active Substance: RIVAROXABAN
     Indication: Prophylaxis
     Dosage: 10 MILLIGRAM, QD
     Route: 048
     Dates: start: 20230530, end: 20230601
  95. RIVAROXABAN [Concomitant]
     Active Substance: RIVAROXABAN
     Dosage: 10 MILLIGRAM, SINGLE
     Route: 048
     Dates: start: 20230615, end: 20230615
  96. RIVAROXABAN [Concomitant]
     Active Substance: RIVAROXABAN
     Dosage: 10 MILLIGRAM, QD
     Route: 048
     Dates: start: 20230625, end: 20230627
  97. PIPERACILLIN AND TAZOBACTAM [Concomitant]
     Active Substance: PIPERACILLIN SODIUM\TAZOBACTAM SODIUM
     Indication: Prophylaxis
     Dosage: 3.375 GRAM, Q6H
     Route: 042
     Dates: start: 20230529, end: 20230601
  98. PIPERACILLIN AND TAZOBACTAM [Concomitant]
     Active Substance: PIPERACILLIN SODIUM\TAZOBACTAM SODIUM
     Indication: Infection prophylaxis
     Dosage: 3.375 GRAM, Q6H
     Route: 042
     Dates: start: 20230615, end: 20230621
  99. PIPERACILLIN AND TAZOBACTAM [Concomitant]
     Active Substance: PIPERACILLIN SODIUM\TAZOBACTAM SODIUM
     Dosage: 3.375 GRAM, Q6H
     Route: 042
     Dates: start: 20231015
  100. POSACONAZOLE [Concomitant]
     Active Substance: POSACONAZOLE
     Indication: Prophylaxis
     Dosage: 300 MILLIGRAM, TWICE
     Route: 048
     Dates: start: 20230615, end: 20230615
  101. POSACONAZOLE [Concomitant]
     Active Substance: POSACONAZOLE
     Dosage: 300 MILLIGRAM, Q12H
     Route: 048
     Dates: start: 20230615, end: 20230620
  102. POSACONAZOLE [Concomitant]
     Active Substance: POSACONAZOLE
     Dosage: 300 MILLIGRAM, Q12H
     Route: 048
     Dates: start: 20230616, end: 20230620
  103. POTASSIUM CHLORIDE [Concomitant]
     Active Substance: POTASSIUM CHLORIDE
     Indication: Prophylaxis
     Dosage: 20 MILLIEQUIVALENT, EVERY HOUR (QH)
     Route: 042
     Dates: start: 20230531, end: 20230531
  104. POTASSIUM CHLORIDE [Concomitant]
     Active Substance: POTASSIUM CHLORIDE
     Dosage: 40 MILLIEQUIVALENT, SINGLE
     Route: 048
     Dates: start: 20230617, end: 20230617
  105. POTASSIUM PHOSPHATE [Concomitant]
     Active Substance: POTASSIUM PHOSPHATE
     Indication: Prophylaxis
     Dosage: 250 MILLILITER, SINGLE
     Route: 048
     Dates: start: 20230530, end: 20230530
  106. PROPOFOL [Concomitant]
     Active Substance: PROPOFOL
     Indication: Prophylaxis
     Dosage: 50 MILLIGRAM, PRN
     Route: 042
     Dates: start: 20230615, end: 20230615
  107. PROPOFOL [Concomitant]
     Active Substance: PROPOFOL
     Indication: Sedation
     Dosage: 150 MILLIGRAM, PRN
     Route: 042
     Dates: start: 20230615, end: 20230615
  108. PROPOFOL [Concomitant]
     Active Substance: PROPOFOL
     Dosage: 300 MCG/KG/MIN, CONTINUOUS
     Route: 042
     Dates: start: 20231020
  109. ROCURONIUM [Concomitant]
     Active Substance: ROCURONIUM BROMIDE
     Indication: Paralysis
     Dosage: 50 MILLIGRAM, SINGLE
     Route: 042
     Dates: start: 20231020
  110. SOLU-MEDROL [Concomitant]
     Active Substance: METHYLPREDNISOLONE SODIUM SUCCINATE
     Indication: Prophylaxis
     Dosage: 10 MILLIGRAM, SINGLE
     Route: 042
     Dates: start: 20230822, end: 20230822
  111. SODIUM CHLORIDE [Concomitant]
     Active Substance: SODIUM CHLORIDE
     Indication: Prophylaxis
     Dosage: 1000 MILLILITER, SINGLE
     Route: 042
     Dates: start: 20230424, end: 20230424
  112. SODIUM CHLORIDE [Concomitant]
     Active Substance: SODIUM CHLORIDE
     Dosage: 1000 MILLILITER, SINGLE
     Route: 042
     Dates: start: 20230526, end: 20230526
  113. SODIUM CHLORIDE [Concomitant]
     Active Substance: SODIUM CHLORIDE
     Dosage: 1000 MILLILITER, SINGLE
     Route: 042
     Dates: start: 20230530, end: 20230530
  114. SODIUM CHLORIDE [Concomitant]
     Active Substance: SODIUM CHLORIDE
     Dosage: 500 MILLILITER, SINGLE
     Route: 042
     Dates: start: 20230530, end: 20230530
  115. SODIUM CHLORIDE [Concomitant]
     Active Substance: SODIUM CHLORIDE
     Dosage: 1000 MILLILITER, CONTINUOUS
     Route: 042
     Dates: start: 20230530, end: 20230531
  116. SODIUM CHLORIDE [Concomitant]
     Active Substance: SODIUM CHLORIDE
     Dosage: 1000 MILLILITER, SINGLE
     Route: 042
     Dates: start: 20230606, end: 20230606
  117. SODIUM CHLORIDE [Concomitant]
     Active Substance: SODIUM CHLORIDE
     Dosage: 1000 MILLILITER, SINGLE
     Route: 042
     Dates: start: 20230613, end: 20230613
  118. SODIUM CHLORIDE [Concomitant]
     Active Substance: SODIUM CHLORIDE
     Dosage: 1000 MILLILITER, SINGLE
     Route: 042
     Dates: start: 20230619, end: 20230619
  119. SOLU-CORTEF [Concomitant]
     Active Substance: HYDROCORTISONE SODIUM SUCCINATE
     Indication: Prophylaxis
     Dosage: 50 MILLIGRAM, SINGLE
     Route: 042
     Dates: start: 20230919, end: 20230919
  120. SUCRALFATE [Concomitant]
     Active Substance: SUCRALFATE
     Indication: Prophylaxis
     Dosage: 1 GRAM, BEFORE MEALS AND BEDTIME
     Route: 048
     Dates: start: 20230530, end: 20230602
  121. SULFAMETHOXAZOLE\TRIMETHOPRIM [Concomitant]
     Active Substance: SULFAMETHOXAZOLE\TRIMETHOPRIM
     Indication: Prophylaxis
     Dosage: 800 MILLIGRAM, SINGLE
     Route: 048
     Dates: start: 20230403, end: 20230403
  122. SULFAMETHOXAZOLE\TRIMETHOPRIM [Concomitant]
     Active Substance: SULFAMETHOXAZOLE\TRIMETHOPRIM
     Dosage: 800 MILLIGRAM, TWICE
     Route: 048
     Dates: start: 20230531, end: 20230602
  123. SULFAMETHOXAZOLE\TRIMETHOPRIM [Concomitant]
     Active Substance: SULFAMETHOXAZOLE\TRIMETHOPRIM
     Dosage: 800 MILLIGRAM, EVERY MON-WED-FRI
     Route: 048
     Dates: start: 20230616, end: 20230621
  124. SULFAMETHOXAZOLE\TRIMETHOPRIM [Concomitant]
     Active Substance: SULFAMETHOXAZOLE\TRIMETHOPRIM
     Dosage: 800 MILLIGRAM, SINGLE
     Route: 048
     Dates: start: 20230726, end: 20230726
  125. VANCOMYCIN [Concomitant]
     Active Substance: VANCOMYCIN
     Indication: Prophylaxis
     Dosage: 750 MILLIGRAM, Q12H
     Route: 042
     Dates: start: 20230529, end: 20230601
  126. VANCOMYCIN [Concomitant]
     Active Substance: VANCOMYCIN
     Indication: Pyrexia
     Dosage: 200 MILLILITER, SINGLE
     Route: 042
     Dates: start: 20230615, end: 20230615
  127. VANCOMYCIN [Concomitant]
     Active Substance: VANCOMYCIN
     Indication: Infection prophylaxis
     Dosage: 750 MILLIGRAM, Q12H
     Route: 042
     Dates: start: 20231015, end: 20231016
  128. VORICONAZOLE [Concomitant]
     Active Substance: VORICONAZOLE
     Indication: Prophylaxis
     Dosage: 400 MILLIGRAM, SINGLE
     Route: 048
     Dates: start: 20230621, end: 20230621
  129. ZOSYN [Concomitant]
     Active Substance: PIPERACILLIN SODIUM\TAZOBACTAM SODIUM
     Indication: Pyrexia
     Dosage: 3.375 GRAM, Q6H
     Route: 042
     Dates: start: 20230529, end: 20230601
  130. ZYPREXA [Concomitant]
     Active Substance: OLANZAPINE
     Indication: Decreased appetite
     Dosage: 2.5 MILLIGRAM, BID
     Route: 048
     Dates: start: 20230623, end: 20230816

REACTIONS (3)
  - Dyspnoea [Not Recovered/Not Resolved]
  - Bronchopulmonary aspergillosis [Recovering/Resolving]
  - Tachycardia [Recovered/Resolved]

NARRATIVE: CASE EVENT DATE: 20230327
